FAERS Safety Report 8339736-9 (Version None)
Quarter: 2012Q2

REPORT INFORMATION
  Report Type: 
  Country: None (occurrence: None)
  Receive Date: 20120507
  Receipt Date: 20120503
  Transmission Date: 20120825
  Serious: Yes (Death, Hospitalization)
  Sender: FDA-Public Use
  Company Number: PHHY2012MY037678

PATIENT
  Sex: Male

DRUGS (2)
  1. HYDROXYUREA [Suspect]
  2. TASIGNA [Suspect]
     Indication: CHRONIC MYELOID LEUKAEMIA

REACTIONS (4)
  - HEADACHE [None]
  - PLATELET COUNT DECREASED [None]
  - HAEMORRHAGE INTRACRANIAL [None]
  - VARICELLA [None]
